FAERS Safety Report 8614358-0 (Version None)
Quarter: 2012Q3

REPORT INFORMATION
  Report Type: 
  Country: None (occurrence: None)
  Receive Date: 20120823
  Receipt Date: 20120813
  Transmission Date: 20120928
  Serious: Yes (Hospitalization)
  Sender: FDA-Public Use
  Company Number: GR-009507513-1103GRC00001

PATIENT

DRUGS (5)
  1. HYDROCHLOROTHIAZIDE [Concomitant]
  2. ACCURETIC [Concomitant]
     Route: 048
  3. ZOLOFT [Concomitant]
     Route: 048
  4. NEUROBION [Concomitant]
  5. JANUMET [Suspect]
     Indication: TYPE 2 DIABETES MELLITUS
     Dosage: 1000/50
     Route: 048
     Dates: start: 20091101, end: 20100407

REACTIONS (1)
  - PEMPHIGOID [None]
